FAERS Safety Report 19507267 (Version 2)
Quarter: 2021Q3

REPORT INFORMATION
  Report Type: Spontaneous
  Country: SI (occurrence: SI)
  Receive Date: 20210708
  Receipt Date: 20210804
  Transmission Date: 20211014
  Serious: Yes (Other)
  Sender: FDA-Public Use
  Company Number: SI-MYLANLABS-2021M1040545

PATIENT
  Sex: Male

DRUGS (6)
  1. TADALAFIL. [Suspect]
     Active Substance: TADALAFIL
     Indication: PRODUCT USED FOR UNKNOWN INDICATION
     Dosage: 20 MILLIGRAM
     Route: 065
  2. GLURENORM [Concomitant]
     Active Substance: GLIQUIDONE
     Indication: DIABETES MELLITUS
     Dosage: UNK
     Route: 065
  3. KAMIREN [Interacting]
     Active Substance: DOXAZOSIN MESYLATE
     Indication: PRODUCT USED FOR UNKNOWN INDICATION
     Dosage: UNK (STOPPED 14 DAYS AGO)
     Route: 065
  4. TARKA [Concomitant]
     Active Substance: TRANDOLAPRIL\VERAPAMIL HYDROCHLORIDE
     Indication: BLOOD PRESSURE INCREASED
     Dosage: UNK (STOPPED 14 DAYS AGO)
     Route: 065
  5. GLUCOPHAGE [Concomitant]
     Active Substance: METFORMIN HYDROCHLORIDE
     Indication: DIABETES MELLITUS
     Dosage: UNK
     Route: 065
  6. AMLEWEL [Concomitant]
     Active Substance: AMLODIPINE\INDAPAMIDE\PERINDOPRIL
     Indication: PRODUCT USED FOR UNKNOWN INDICATION
     Dosage: UNK (4 MG/10 MG/1.25 MG) (STOPPED 14 DAYS AGO)

REACTIONS (4)
  - Drug ineffective [Unknown]
  - Erectile dysfunction [Unknown]
  - Potentiating drug interaction [Unknown]
  - Product use issue [Unknown]
